FAERS Safety Report 7665945-8 (Version None)
Quarter: 2011Q3

REPORT INFORMATION
  Report Type: 
  Country: None (occurrence: None)
  Receive Date: 20110806
  Receipt Date: 20110622
  Transmission Date: 20111222
  Serious: No
  Sender: FDA-Public Use
  Company Number: US-ABBOTT-11P-163-0734214-00

PATIENT
  Sex: Male

DRUGS (3)
  1. NIASPAN [Suspect]
     Indication: PRODUCT USED FOR UNKNOWN INDICATION
     Dosage: AT BEDTIME
  2. ASPIRIN [Concomitant]
     Indication: PRODUCT USED FOR UNKNOWN INDICATION
     Dosage: AT BEDTIME 15 MINUTES BEFORE NIASPAN COATED
  3. ANTIBIOTICS [Concomitant]
     Indication: TOOTH ABSCESS

REACTIONS (2)
  - BLOOD GLUCOSE INCREASED [None]
  - BURNING SENSATION [None]
